FAERS Safety Report 8233301-X (Version None)
Quarter: 2012Q1

REPORT INFORMATION
  Report Type: 
  Country: None (occurrence: None)
  Receive Date: 20120326
  Receipt Date: 20120322
  Transmission Date: 20120608
  Serious: Yes (Other)
  Sender: FDA-Public Use
  Company Number: US-BAYER-2012-028487

PATIENT
  Sex: Female

DRUGS (3)
  1. YASMIN [Suspect]
     Dosage: UNK
     Dates: start: 20061001, end: 20090101
  2. YAZ [Suspect]
     Dosage: UNK
     Dates: start: 20061001, end: 20090101
  3. DROSPIRENONE AND ETHINYL ESTRADIOL [Suspect]
     Dosage: UNK
     Dates: start: 20061001, end: 20090101

REACTIONS (12)
  - PSYCHOLOGICAL TRAUMA [None]
  - MUSCLE SPASMS [None]
  - ANXIETY [None]
  - MIGRAINE [None]
  - ANHEDONIA [None]
  - THROMBOSIS [None]
  - PAIN [None]
  - EMOTIONAL DISTRESS [None]
  - INJURY [None]
  - FEAR [None]
  - FALLOPIAN TUBE OBSTRUCTION [None]
  - INFERTILITY [None]
